FAERS Safety Report 6000069-7 (Version None)
Quarter: 2008Q4

REPORT INFORMATION
  Report Type: 
  Country: None (occurrence: None)
  Receive Date: 20081215
  Receipt Date: 20081204
  Transmission Date: 20090506
  Serious: Yes (Death, Hospitalization)
  Sender: FDA-Public Use
  Company Number: B0548941A

PATIENT
  Age: 66 Year
  Sex: Female

DRUGS (9)
  1. ZOPHREN [Suspect]
     Indication: DRUG USE FOR UNKNOWN INDICATION
     Dosage: 16MG PER DAY
     Route: 042
     Dates: start: 20080902, end: 20080918
  2. TIENAM [Suspect]
     Indication: AGRANULOCYTOSIS
     Dosage: 3000MG PER DAY
     Route: 042
     Dates: start: 20080910, end: 20080912
  3. TRIFLUCAN [Suspect]
     Indication: FUNGAL INFECTION
     Dosage: 100MG TWICE PER DAY
     Route: 042
     Dates: start: 20080910, end: 20080922
  4. ALIMTA [Suspect]
     Indication: LUNG ADENOCARCINOMA METASTATIC
     Dosage: 950MG PER DAY
     Route: 050
     Dates: start: 20080902, end: 20080902
  5. PRIMPERAN TAB [Suspect]
     Dosage: 30MG PER DAY
     Route: 042
     Dates: start: 20080910, end: 20080917
  6. FUNGIZONE [Concomitant]
     Indication: FUNGAL INFECTION
     Route: 065
     Dates: start: 20080909, end: 20080922
  7. AMLOD [Concomitant]
  8. ALDACTONE [Concomitant]
  9. ADVIL LIQUI-GELS [Concomitant]
     Indication: PAIN
     Dosage: 1UNIT TWICE PER DAY

REACTIONS (7)
  - OROPHARYNGEAL BLISTERING [None]
  - PRURIGO [None]
  - RENAL FAILURE ACUTE [None]
  - SKIN DISORDER [None]
  - STEVENS-JOHNSON SYNDROME [None]
  - TOXIC EPIDERMAL NECROLYSIS [None]
  - TOXIC SKIN ERUPTION [None]
